FAERS Safety Report 13075799 (Version 1)
Quarter: 2016Q4

REPORT INFORMATION
  Report Type: Spontaneous
  Country: US (occurrence: US)
  Receive Date: 20161230
  Receipt Date: 20161230
  Transmission Date: 20170207
  Serious: Yes (Life-Threatening, Hospitalization, Disabling, Other)
  Sender: FDA-Public Use
  Company Number: None

PATIENT
  Age: 82 Year
  Sex: Male
  Weight: 80.9 kg

DRUGS (7)
  1. BORTEZOMIB [Concomitant]
     Active Substance: BORTEZOMIB
  2. LENALIDOMIDE [Concomitant]
     Active Substance: LENALIDOMIDE
  3. WARFARIN [Concomitant]
     Active Substance: WARFARIN
  4. DEXAMETHASONE. [Concomitant]
     Active Substance: DEXAMETHASONE
  5. DARATUMUMAB [Suspect]
     Active Substance: DARATUMUMAB
     Indication: PLASMA CELL MYELOMA
     Dosage: ?          OTHER FREQUENCY:WEEKLY FOR 8 WEEKS;  INTRAVENOUS (NOT OTHERWISE SPECIFIED) ?
     Route: 042
     Dates: start: 20160613, end: 20160707
  6. POMALIDOMIDE [Concomitant]
     Active Substance: POMALIDOMIDE
  7. IXAZOMIB [Concomitant]
     Active Substance: IXAZOMIB

REACTIONS (11)
  - Pulmonary embolism [None]
  - Bronchospasm [None]
  - Blood creatinine increased [None]
  - Confusional state [None]
  - Depressed level of consciousness [None]
  - Aspiration [None]
  - Lethargy [None]
  - Dyspnoea [None]
  - Memory impairment [None]
  - Affect lability [None]
  - Pneumonia [None]

NARRATIVE: CASE EVENT DATE: 20160620
